FAERS Safety Report 4810565-3 (Version None)
Quarter: 2005Q4

REPORT INFORMATION
  Report Type: 
  Country: None (occurrence: None)
  Receive Date: 20051025
  Receipt Date: 20051025
  Transmission Date: 20060501
  Serious: Yes (Hospitalization)
  Sender: FDA-Public Use
  Company Number: None

PATIENT
  Sex: Female
  Weight: 51.4379 kg

DRUGS (6)
  1. ZARNESTRA  100MG  JOHNSON + JOHNSON [Suspect]
     Dosage: 600 MG BID PO  CYCLE 2
     Route: 048
     Dates: start: 20050928, end: 20051015
  2. CIPRO [Concomitant]
  3. VITAMIN K [Concomitant]
  4. DECADRON [Concomitant]
  5. PROTONIX [Concomitant]
  6. POTASSIUM [Concomitant]

REACTIONS (4)
  - BIOPSY BONE MARROW ABNORMAL [None]
  - DEHYDRATION [None]
  - FEBRILE NEUTROPENIA [None]
  - VOMITING [None]
